FAERS Safety Report 10985135 (Version 1)
Quarter: 2015Q2

REPORT INFORMATION
  Report Type: Spontaneous
  Country: JP (occurrence: JP)
  Receive Date: 20150404
  Receipt Date: 20150404
  Transmission Date: 20150821
  Serious: Yes (Other)
  Sender: FDA-Public Use
  Company Number: JP-ACCORD-029723

PATIENT
  Age: 70 Year
  Sex: Female

DRUGS (3)
  1. TS-1 [Suspect]
     Active Substance: GIMERACIL\OTERACIL\TEGAFUR
     Indication: ANGIOSARCOMA
     Dosage: MONTHLY S-1 (120 MG, 80 MG/M2)
  2. PACLITAXEL/PACLITAXEL LIPOSOME [Suspect]
     Active Substance: PACLITAXEL
     Indication: ANGIOSARCOMA
     Dosage: TRIWEEKLY PACLITAXEL (PTX) THERAPY
  3. DOCETAXEL. [Suspect]
     Active Substance: DOCETAXEL
     Indication: ANGIOSARCOMA
     Dosage: 60 MG, 40 MG/M2, MONTHLY

REACTIONS (5)
  - Malaise [Unknown]
  - Drug resistance [Unknown]
  - Neutropenia [Unknown]
  - Lacrimation increased [Unknown]
  - Diarrhoea [Unknown]
